FAERS Safety Report 17125028 (Version 1)
Quarter: 2019Q4

REPORT INFORMATION
  Report Type: Spontaneous
  Country: HR (occurrence: HR)
  Receive Date: 20191206
  Receipt Date: 20191206
  Transmission Date: 20200122
  Serious: Yes (Hospitalization, Other)
  Sender: FDA-Public Use
  Company Number: HR-B.I. PHARMACEUTICALS,INC./RIDGEFIELD-2019-BI-116929

PATIENT
  Age: 72 Year
  Sex: Male

DRUGS (2)
  1. GILOTRIF [Suspect]
     Active Substance: AFATINIB
     Indication: EGFR GENE MUTATION
     Route: 065
     Dates: start: 201810
  2. GILOTRIF [Suspect]
     Active Substance: AFATINIB
     Indication: LUNG ADENOCARCINOMA
     Route: 065
     Dates: start: 20171004, end: 201809

REACTIONS (10)
  - Diarrhoea [Unknown]
  - Skin disorder [Unknown]
  - Diarrhoea [Unknown]
  - Pancreatitis [Unknown]
  - Malignant neoplasm progression [Unknown]
  - Pancreatitis relapsing [Unknown]
  - Metastases to liver [Unknown]
  - Cholecystitis [Unknown]
  - Cholecystitis [Unknown]
  - Dry skin [Unknown]

NARRATIVE: CASE EVENT DATE: 20171023
